FAERS Safety Report 8461082 (Version 3)
Quarter: 2012Q4

REPORT INFORMATION
  Report Type: Spontaneous
  Country: FR (occurrence: None)
  Receive Date: 20120305
  Receipt Date: 20120927
  Transmission Date: 20130627
  Serious: Yes (Hospitalization)
  Sender: FDA-Public Use
  Company Number: 2012031399

PATIENT
  Age: 51 Year
  Sex: Male

DRUGS (7)
  1. VIVAGLOBIN [Suspect]
     Indication: CHRONIC LYMPHOCYTIC LEUKAEMIA
     Dosage: 6.4 G 1X/WEEK, 160MG/ML EVERY  7 DAYS INTRAVENOUS (NOT OTHERWISE SPECIFIED)
     Route: 042
     Dates: start: 20111025
  2. HAEMOPHILUS B CONJUGATE VACCINE NOS [Suspect]
     Indication: IMMUNISATION
     Dates: start: 20110926, end: 20110926
  3. HAEMOPHILUS B CONJUGATE VACCINE NOS [Suspect]
     Indication: IMMUNISATION
     Dates: start: 20111108, end: 20111108
  4. NOXAFIL [Suspect]
     Dates: start: 20110715, end: 20110926
  5. PREDNISONE [Concomitant]
  6. GANCICLOVIR [Concomitant]
  7. FOSCAVIR [Concomitant]

REACTIONS (12)
  - Thrombocytopenia [None]
  - Graft versus host disease [None]
  - Bone marrow disorder [None]
  - Cytomegalovirus test positive [None]
  - White blood cell count increased [None]
  - Polyuria [None]
  - Polydipsia [None]
  - Incorrect route of drug administration [None]
  - Off label use [None]
  - Leukopenia [None]
  - Haemoglobin decreased [None]
  - Diabetes mellitus [None]
